FAERS Safety Report 19589042 (Version 1)
Quarter: 2021Q3

REPORT INFORMATION
  Report Type: Spontaneous
  Country: CN (occurrence: CN)
  Receive Date: 20210721
  Receipt Date: 20210721
  Transmission Date: 20211014
  Serious: Yes (Other)
  Sender: FDA-Public Use
  Company Number: CN-PFIZER INC-2021847148

PATIENT
  Age: 80 Year
  Sex: Female
  Weight: 40 kg

DRUGS (4)
  1. MEDROL [Suspect]
     Active Substance: METHYLPREDNISOLONE
     Dosage: 24 MG, 1X/DAY
     Route: 048
     Dates: start: 20210601, end: 20210621
  2. WAN MAI NING UNSPECIFIED [Suspect]
     Active Substance: UNSPECIFIED INGREDIENT
     Indication: THERAPEUTIC PROCEDURE
     Dosage: 5000 IU, 1X/DAY
     Route: 058
     Dates: start: 20210617, end: 20210620
  3. MEDROL [Suspect]
     Active Substance: METHYLPREDNISOLONE
     Indication: THERAPEUTIC PROCEDURE
     Dosage: 36 MG, 1X/DAY
     Route: 048
     Dates: start: 20210401, end: 20210531
  4. PLAVIX [Suspect]
     Active Substance: CLOPIDOGREL BISULFATE
     Indication: THERAPEUTIC PROCEDURE
     Dosage: 75 MG, 1X/DAY
     Route: 048
     Dates: start: 20210331, end: 20210620

REACTIONS (2)
  - Lower gastrointestinal haemorrhage [Recovering/Resolving]
  - Petechiae [Recovering/Resolving]

NARRATIVE: CASE EVENT DATE: 20210620
